FAERS Safety Report 22296678 (Version 1)
Quarter: 2023Q2

REPORT INFORMATION
  Report Type: Spontaneous
  Country: GB (occurrence: GB)
  Receive Date: 20230508
  Receipt Date: 20230508
  Transmission Date: 20230721
  Serious: Yes (Disabling, Other)
  Sender: FDA-Public Use
  Company Number: GB-CELLTRION INC.-2022GB013803

PATIENT

DRUGS (2)
  1. INFLIXIMAB [Suspect]
     Active Substance: INFLIXIMAB
     Indication: Crohn^s disease
     Dosage: 120 MG EVERY 2 WEEKS
     Route: 058
     Dates: start: 20220715
  2. INFLIXIMAB [Suspect]
     Active Substance: INFLIXIMAB
     Dosage: 120 MILLIGRAM EVERY 2 WEEKS (REMSIMA INJECTION WAS SELF ADMINISTERED ON 12/08.)
     Route: 058

REACTIONS (7)
  - Immobile [Unknown]
  - Condition aggravated [Unknown]
  - Malaise [Unknown]
  - Abdominal pain upper [Unknown]
  - Headache [Unknown]
  - Vomiting [Unknown]
  - Diarrhoea [Unknown]

NARRATIVE: CASE EVENT DATE: 20220817
